FAERS Safety Report 8768001 (Version 9)
Quarter: 2014Q4

REPORT INFORMATION
  Report Type: Spontaneous
  Country: US (occurrence: US)
  Receive Date: 20120905
  Receipt Date: 20141125
  Transmission Date: 20150529
  Serious: Yes (Hospitalization, Disabling, Other)
  Sender: FDA-Public Use
  Company Number: US-009507513-1203USA00780

PATIENT
  Sex: Female

DRUGS (6)
  1. ALENDRONATE SODIUM. [Suspect]
     Active Substance: ALENDRONATE SODIUM
     Indication: OSTEOPOROSIS
     Dosage: 70 MG, QW
     Route: 048
     Dates: start: 2008, end: 20100704
  2. VITAMINS (UNSPECIFIED) [Concomitant]
     Active Substance: VITAMINS
     Dosage: UNK UNK, BID
     Dates: start: 1999
  3. VITAMIN D [Concomitant]
     Active Substance: CHOLECALCIFEROL
     Dosage: UNK
     Dates: start: 1999
  4. ASCORBIC ACID. [Concomitant]
     Active Substance: ASCORBIC ACID
     Dosage: UNK
     Dates: start: 1999
  5. FOSAMAX [Suspect]
     Active Substance: ALENDRONATE SODIUM
     Indication: OSTEOPOROSIS
     Dosage: 70 MG, QW
     Route: 048
     Dates: end: 2010
  6. FOSAMAX [Suspect]
     Active Substance: ALENDRONATE SODIUM
     Indication: OSTEOPENIA

REACTIONS (58)
  - Device failure [Unknown]
  - Depression [Not Recovered/Not Resolved]
  - Wrist fracture [Unknown]
  - Radius fracture [Unknown]
  - Blepharitis [Unknown]
  - Surgery [Unknown]
  - Open reduction of fracture [Unknown]
  - Procedural hypotension [Recovered/Resolved]
  - Vomiting [Unknown]
  - Infection [Unknown]
  - Fracture nonunion [Unknown]
  - Femur fracture [Unknown]
  - Open reduction of fracture [Unknown]
  - Face injury [Unknown]
  - Haemorrhagic anaemia [Recovering/Resolving]
  - Femur fracture [Unknown]
  - Internal fixation of fracture [Unknown]
  - Fracture nonunion [Not Recovered/Not Resolved]
  - Bladder neck suspension [Unknown]
  - Haemorrhagic anaemia [Unknown]
  - Low turnover osteopathy [Unknown]
  - Self esteem decreased [Not Recovered/Not Resolved]
  - Hyperthyroidism [Unknown]
  - Major depression [Recovering/Resolving]
  - Osteoarthritis [Unknown]
  - Bone graft [Unknown]
  - Joint injury [Unknown]
  - Goitre [Unknown]
  - Somnolence [Unknown]
  - Varicose vein [Unknown]
  - Polyp [Unknown]
  - Deafness [Recovered/Resolved]
  - Intramedullary rod insertion [Unknown]
  - Knee arthroplasty [Unknown]
  - Medical device removal [Unknown]
  - Thyroidectomy [Unknown]
  - Nausea [Unknown]
  - Anxiety [Not Recovered/Not Resolved]
  - Anaemia postoperative [Recovered/Resolved]
  - Obstructive airways disorder [Unknown]
  - Gait disturbance [Unknown]
  - Knee arthroplasty [Unknown]
  - Open reduction of fracture [Unknown]
  - Bone graft [Recovering/Resolving]
  - Device failure [Unknown]
  - Hyperlipidaemia [Unknown]
  - Adjustment disorder with depressed mood [Unknown]
  - Hypothyroidism [Unknown]
  - Asthma [Unknown]
  - Major depression [Unknown]
  - Bone disorder [Unknown]
  - Bladder operation [Unknown]
  - Tonsillectomy [Unknown]
  - Open reduction of fracture [Unknown]
  - Arthropathy [Unknown]
  - Cerumen impaction [Recovered/Resolved]
  - Malnutrition [Unknown]
  - Constipation [Unknown]

NARRATIVE: CASE EVENT DATE: 2003
